FAERS Safety Report 23791296 (Version 1)
Quarter: 2024Q2

REPORT INFORMATION
  Report Type: Report from Study
  Country: CA (occurrence: CA)
  Receive Date: 20240428
  Receipt Date: 20240428
  Transmission Date: 20240715
  Serious: Yes (Other)
  Sender: FDA-Public Use
  Company Number: CA-ABBVIE-5735318

PATIENT
  Age: 50 Year
  Sex: Female

DRUGS (1)
  1. RINVOQ [Suspect]
     Active Substance: UPADACITINIB
     Indication: Crohn^s disease
     Dosage: DRUG END DATE APR 2024, 45MG ONCE DAILY FOR 12 WEEKS, THEN 15MG ONCE DAILY
     Route: 048
     Dates: start: 20240409

REACTIONS (4)
  - Loss of consciousness [Unknown]
  - Stress [Unknown]
  - Syncope [Recovered/Resolved]
  - Blood pressure increased [Unknown]

NARRATIVE: CASE EVENT DATE: 20240401
